FAERS Safety Report 8078083-X (Version None)
Quarter: 2012Q1

REPORT INFORMATION
  Report Type: 
  Country: None (occurrence: None)
  Receive Date: 20120127
  Receipt Date: 20110110
  Transmission Date: 20120608
  Serious: No
  Sender: FDA-Public Use
  Company Number: US-ABBOTT-11P-163-0696153-00

PATIENT
  Sex: Male

DRUGS (3)
  1. CLINORIL [Concomitant]
     Indication: PSORIASIS
     Dosage: NOT REPORTED.
     Dates: start: 20101201, end: 20101207
  2. HUMIRA [Suspect]
     Route: 058
     Dates: start: 20101201
  3. HUMIRA [Suspect]
     Indication: PSORIASIS
     Route: 058
     Dates: start: 20090401, end: 20100101

REACTIONS (3)
  - DRUG INEFFECTIVE [None]
  - VISION BLURRED [None]
  - PSORIASIS [None]
